FAERS Safety Report 5161561-0 (Version None)
Quarter: 2006Q4

REPORT INFORMATION
  Report Type: 
  Country: None (occurrence: None)
  Receive Date: 20061130
  Receipt Date: 20060911
  Transmission Date: 20070319
  Serious: No
  Sender: FDA-Public Use
  Company Number: BPC-XL-06-054

PATIENT
  Sex: Female

DRUGS (2)
  1. WELLBUTRIN XL [Suspect]
     Indication: DEPRESSION
     Dosage: 300MG UNKNOWN
     Route: 065
     Dates: start: 20060808
  2. LEXAPRO [Suspect]
     Indication: ANXIETY
     Dosage: 10ML UNKNOWN
     Route: 065
     Dates: start: 20060801, end: 20060830

REACTIONS (8)
  - ADVERSE DRUG REACTION [None]
  - AGITATION [None]
  - ANXIETY [None]
  - CRYING [None]
  - HYPERSENSITIVITY [None]
  - PRURITUS [None]
  - RASH [None]
  - URTICARIA [None]
